FAERS Safety Report 8359504-1 (Version None)
Quarter: 2012Q2

REPORT INFORMATION
  Report Type: 
  Country: None (occurrence: None)
  Receive Date: 20120515
  Receipt Date: 20120507
  Transmission Date: 20120825
  Serious: Yes (Hospitalization, Other)
  Sender: FDA-Public Use
  Company Number: US-BAYER-2012-040281

PATIENT
  Age: 40 Year
  Sex: Female

DRUGS (14)
  1. PROPRANOLOL [Concomitant]
     Indication: HEADACHE
     Dosage: 10 MG, TABLET
     Dates: start: 20060323
  2. MAXALT [Concomitant]
  3. WELLBUTRIN XL [Concomitant]
     Dosage: 900 MG, TABLET
     Dates: start: 20060220
  4. LEVOTHROID [Concomitant]
     Dosage: 50 MCG/24HR, TABLET
     Dates: start: 20060221, end: 20060504
  5. ELAVIL [Concomitant]
  6. AMBIEN [Concomitant]
     Dosage: 10 MG, TABLET
     Dates: start: 20060220
  7. CYCLOBENZAPRINE [Concomitant]
     Dosage: 10 MG, TABLET
     Dates: start: 20060411
  8. PROPRANOLOL [Concomitant]
     Dosage: UNK
     Dates: start: 20060421
  9. RELPAX [Concomitant]
     Dosage: UNK UNK, PRN
  10. AMITRIPTYLINE HCL [Concomitant]
     Dosage: 50 MG, UNK
     Dates: start: 20060411
  11. INDERAL [Concomitant]
  12. YASMIN [Suspect]
     Dosage: UNK
     Dates: start: 20051201, end: 20060501
  13. SYNTHROID [Concomitant]
  14. FLEXERIL [Concomitant]

REACTIONS (7)
  - INJURY [None]
  - GENERAL PHYSICAL HEALTH DETERIORATION [None]
  - ANXIETY [None]
  - EMOTIONAL DISTRESS [None]
  - DEEP VEIN THROMBOSIS [None]
  - PAIN [None]
  - PULMONARY EMBOLISM [None]
